FAERS Safety Report 19102986 (Version 3)
Quarter: 2021Q2

REPORT INFORMATION
  Report Type: Spontaneous
  Country: IT (occurrence: IT)
  Receive Date: 20210407
  Receipt Date: 20210426
  Transmission Date: 20210717
  Serious: Yes (Hospitalization, Other)
  Sender: FDA-Public Use
  Company Number: IT-GLAXOSMITHKLINE-IT2021EME073730

PATIENT
  Age: 50 Year
  Sex: Female

DRUGS (3)
  1. ZEJULA [Suspect]
     Active Substance: NIRAPARIB
     Dosage: 100 MG, QD
  2. ZEJULA [Suspect]
     Active Substance: NIRAPARIB
     Indication: OVARIAN NEOPLASM
     Dosage: 300 MG, QD
     Dates: start: 20180216
  3. ZEJULA [Suspect]
     Active Substance: NIRAPARIB
     Dosage: 200 MG, BID
     Dates: start: 2018

REACTIONS (9)
  - Anaemia [Unknown]
  - Immunosuppression [Unknown]
  - Leukaemia [Unknown]
  - Blast cells [Unknown]
  - Acute myeloid leukaemia [Unknown]
  - Abdominal pain [Unknown]
  - Thrombocytopenia [Not Recovered/Not Resolved]
  - Asthenia [Not Recovered/Not Resolved]
  - Pancytopenia [Unknown]

NARRATIVE: CASE EVENT DATE: 2021
